FAERS Safety Report 4796711-9 (Version None)
Quarter: 2005Q4

REPORT INFORMATION
  Report Type: 
  Country: None (occurrence: None)
  Receive Date: 20051003
  Receipt Date: 20050711
  Transmission Date: 20060501
  Serious: Yes (Other)
  Sender: FDA-Public Use
  Company Number: PHEH2005US07643

PATIENT
  Sex: Female

DRUGS (5)
  1. ESTALIS COMBIPATCH(ESTRADIOL, NORETHISTERONE ACETATE) TRANS-THERAPEUTI [Suspect]
     Indication: HORMONE REPLACEMENT THERAPY
     Dosage: TRANSDERMAL
     Route: 062
  2. PREMPHASE (PREMARIN;CYCRIN 14/14) [Suspect]
  3. ORTHO-PREFEST(ESTRADIOL, NORGESTIMATE) [Suspect]
  4. PREMARIN [Suspect]
  5. ESTRING [Suspect]

REACTIONS (1)
  - BREAST CANCER [None]
